FAERS Safety Report 11766583 (Version 2)
Quarter: 2016Q1

REPORT INFORMATION
  Report Type: Spontaneous
  Country: JP (occurrence: JP)
  Receive Date: 20151123
  Receipt Date: 20160229
  Transmission Date: 20160525
  Serious: Yes (Hospitalization)
  Sender: FDA-Public Use
  Company Number: JP-009507513-1511JPN008657

PATIENT

DRUGS (2)
  1. ESLAX [Suspect]
     Active Substance: ROCURONIUM BROMIDE
     Dosage: DAILY DOSAGE UNKNOWN
     Route: 041
     Dates: start: 2013
  2. BRIDION [Concomitant]
     Active Substance: SUGAMMADEX
     Dosage: 4 MG/KG, UNK
     Route: 041

REACTIONS (2)
  - Adverse event [Unknown]
  - Infusion site extravasation [Unknown]

NARRATIVE: CASE EVENT DATE: 2013
